FAERS Safety Report 8451273-X (Version None)
Quarter: 2012Q2

REPORT INFORMATION
  Report Type: 
  Country: None (occurrence: None)
  Receive Date: 20120620
  Receipt Date: 20120311
  Transmission Date: 20120825
  Serious: No
  Sender: FDA-Public Use
  Company Number: US-VERTEX PHARMACEUTICALS INC.-AE-2012-002214

PATIENT
  Sex: Male
  Weight: 73.548 kg

DRUGS (6)
  1. CENTRUM MULTIVITAMIN [Concomitant]
     Route: 048
  2. LEXAPRO [Concomitant]
     Indication: DEPRESSION
     Route: 048
  3. INCIVEK [Suspect]
     Indication: HEPATITIS C
     Route: 048
     Dates: start: 20120210
  4. SENOKOT [Concomitant]
     Indication: LAXATIVE SUPPORTIVE CARE
     Route: 048
  5. PEGASYS [Concomitant]
     Indication: HEPATITIS C
     Route: 058
     Dates: start: 20120210
  6. RIBAVIRIN [Concomitant]
     Indication: HEPATITIS C
     Route: 048
     Dates: start: 20120210

REACTIONS (4)
  - HAEMORRHOIDS [None]
  - PROCTALGIA [None]
  - VOMITING [None]
  - CONSTIPATION [None]
